FAERS Safety Report 8482247-0 (Version None)
Quarter: 2012Q3

REPORT INFORMATION
  Report Type: 
  Country: None (occurrence: None)
  Receive Date: 20120702
  Receipt Date: 20120628
  Transmission Date: 20120928
  Serious: Yes (Other)
  Sender: FDA-Public Use
  Company Number: JP-PFIZER INC-2012155128

PATIENT
  Age: 3 Month

DRUGS (1)
  1. ZOLOFT [Suspect]
     Route: 063

REACTIONS (3)
  - EXPOSURE DURING BREAST FEEDING [None]
  - HEPATIC FUNCTION ABNORMAL [None]
  - RHABDOMYOLYSIS [None]
